FAERS Safety Report 20720132 (Version 2)
Quarter: 2024Q1

REPORT INFORMATION
  Report Type: Spontaneous
  Country: CA (occurrence: CA)
  Receive Date: 20220418
  Receipt Date: 20240125
  Transmission Date: 20240410
  Serious: Yes (Hospitalization, Other)
  Sender: FDA-Public Use
  Company Number: CA-PFIZER INC-202200521031

PATIENT
  Age: 37 Year
  Sex: Male

DRUGS (4)
  1. XELJANZ [Suspect]
     Active Substance: TOFACITINIB CITRATE
     Indication: Colitis ulcerative
     Dosage: 10 MG, 2X/DAY (X16 WEEKS)
     Route: 048
     Dates: start: 20220222, end: 20220324
  2. XELJANZ [Suspect]
     Active Substance: TOFACITINIB CITRATE
     Dosage: 1 DF
     Route: 048
  3. INFLECTRA [Concomitant]
     Active Substance: INFLIXIMAB-DYYB
     Indication: Colitis ulcerative
     Dosage: 800 MG, 0, 2, 6 WEEKS, THEN EVERY 8 WEEKS. INF17197-0422
     Route: 042
     Dates: start: 20220331
  4. PREDNISONE [Concomitant]
     Active Substance: PREDNISONE
     Dosage: 40 MGUNKNOWN FREQUENCY
     Route: 065
     Dates: start: 20220330

REACTIONS (2)
  - Condition aggravated [Unknown]
  - Drug ineffective [Unknown]
